FAERS Safety Report 4506691-9 (Version None)
Quarter: 2004Q4

REPORT INFORMATION
  Report Type: 
  Country: None (occurrence: None)
  Receive Date: 20041122
  Receipt Date: 20041111
  Transmission Date: 20050328
  Serious: Yes (Other)
  Sender: FDA-Public Use
  Company Number: PHEH2004US12221

PATIENT
  Age: 70 Year
  Sex: Female

DRUGS (2)
  1. LOTREL [Suspect]
     Indication: HYPERTENSION
     Dosage: 10/20 MG, QD
     Route: 048
     Dates: start: 20041101
  2. LOTREL [Suspect]
     Dosage: 5/10MG, QD
     Route: 048
     Dates: start: 20030101, end: 20041101

REACTIONS (2)
  - ASTHENIA [None]
  - CARDIAC FLUTTER [None]
